FAERS Safety Report 10387962 (Version 1)
Quarter: 2014Q3

REPORT INFORMATION
  Report Type: Spontaneous
  Country: BR (occurrence: BR)
  Receive Date: 20140815
  Receipt Date: 20140815
  Transmission Date: 20150326
  Serious: Yes (Other)
  Sender: FDA-Public Use
  Company Number: BR-PFIZER INC-2014226356

PATIENT
  Age: 59 Year
  Sex: Female
  Weight: 56 kg

DRUGS (3)
  1. NATIFA [Concomitant]
     Indication: MENOPAUSE
     Dosage: 1 TABLET, 1X/DAY
     Dates: start: 2007
  2. DETRUSITOL LA [Suspect]
     Active Substance: TOLTERODINE TARTRATE
     Indication: URINARY INCONTINENCE
  3. DETRUSITOL LA [Suspect]
     Active Substance: TOLTERODINE TARTRATE
     Indication: HYPERTONIC BLADDER
     Dosage: 1 TABLET OF STRENGTH 4 MG, 1X/DAY
     Route: 048
     Dates: start: 2007

REACTIONS (2)
  - Drug ineffective [Unknown]
  - Bladder disorder [Unknown]
